FAERS Safety Report 8989801 (Version 2)
Quarter: 2013Q1

REPORT INFORMATION
  Report Type: Spontaneous
  Country: NL (occurrence: NL)
  Receive Date: 20121228
  Receipt Date: 20130103
  Transmission Date: 20140127
  Serious: Yes (Death, Other)
  Sender: FDA-Public Use
  Company Number: NL-JNJFOC-20121210583

PATIENT
  Sex: 0

DRUGS (16)
  1. DOXORUBICIN [Suspect]
     Indication: BONE SARCOMA
     Dosage: THIRD ERA, 6 CYCLES, FOR 3 DAYS
     Route: 042
  2. DOXORUBICIN [Suspect]
     Indication: BONE SARCOMA
     Dosage: SECOND ERA, 6 CYCLES, FOR 3 DAYS
     Route: 042
  3. DOXORUBICIN [Suspect]
     Indication: BONE SARCOMA
     Dosage: IN FIRST ERA, 6 CYCLES, 2-3 CONSECUTIVE DAYS
     Route: 042
  4. DOXORUBICIN [Suspect]
     Indication: BONE SARCOMA
     Dosage: THIRD ERA, 6 CYCLES, FOR 3 DAYS
     Route: 065
  5. DOXORUBICIN [Suspect]
     Indication: BONE SARCOMA
     Dosage: SECOND ERA, 6 CYCLES, FOR 3 DAYS
     Route: 065
  6. DOXORUBICIN [Suspect]
     Indication: BONE SARCOMA
     Dosage: IN FIRST ERA, 6 CYCLES, 2-3 CONSECUTIVE DAYS
     Route: 065
  7. CISPLATIN [Suspect]
     Indication: BONE SARCOMA
     Dosage: THIRD ERA, CONTINUOUS INFUSION WITH DOXORUBICIN
     Route: 065
  8. CISPLATIN [Suspect]
     Indication: BONE SARCOMA
     Dosage: SECOND ERA, CONTINUOUS INFUSION WITH DOXORUBICIN
     Route: 065
  9. CISPLATIN [Suspect]
     Indication: BONE SARCOMA
     Dosage: FIRST ERA, 6 CYCLES, REPEATED 6 HOURS INFUSION
     Route: 065
  10. METHOTREXATE [Suspect]
     Indication: BONE SARCOMA
     Dosage: FIRST ERA, 8-12 CYCLES. 8-12 MG/M2
     Route: 065
  11. METHOTREXATE [Suspect]
     Indication: BONE SARCOMA
     Dosage: 12 CYCLES, 8-12 G/M2
     Route: 065
  12. METHOTREXATE [Suspect]
     Indication: BONE SARCOMA
     Dosage: SECOND ERA, 12 COURSES
     Route: 065
  13. BLEOMYCIN [Suspect]
     Indication: BONE SARCOMA
     Dosage: 1-2 CYCLES
     Route: 065
  14. CYCLOPHOSPHAMIDE [Suspect]
     Indication: BONE SARCOMA
     Dosage: 1-2 CYCLES
     Route: 065
  15. DACTINOMYCIN [Suspect]
     Indication: BONE SARCOMA
     Dosage: 1-2 CYCLES
     Route: 065
  16. FOLINIC ACID [Concomitant]
     Indication: BONE SARCOMA
     Dosage: ALL 3 ERAS
     Route: 065

REACTIONS (8)
  - Cardiomyopathy [Fatal]
  - Neoplasm malignant [Unknown]
  - Nephropathy toxic [Unknown]
  - Ototoxicity [Unknown]
  - Bone marrow failure [Unknown]
  - Cardiac disorder [Unknown]
  - Cardiac failure [Unknown]
  - Off label use [Unknown]
